FAERS Safety Report 7907924-9 (Version None)
Quarter: 2011Q4

REPORT INFORMATION
  Report Type: 
  Country: None (occurrence: None)
  Receive Date: 20111110
  Receipt Date: 20111102
  Transmission Date: 20120403
  Serious: Yes (Hospitalization)
  Sender: FDA-Public Use
  Company Number: US-GILEAD-2011-0046204

PATIENT
  Age: 43 Year
  Sex: Male

DRUGS (4)
  1. RITONAVIR [Suspect]
     Indication: HIV INFECTION
     Dosage: UNK
  2. SULFADIAZINE [Concomitant]
     Indication: TOXOPLASMOSIS
     Dosage: UNK
  3. ATAZANAVIR [Suspect]
     Indication: HIV INFECTION
     Dosage: UNK
  4. VIREAD [Suspect]
     Indication: HIV INFECTION

REACTIONS (1)
  - VANISHING BILE DUCT SYNDROME [None]
